FAERS Safety Report 17582347 (Version 4)
Quarter: 2020Q4

REPORT INFORMATION
  Report Type: Spontaneous
  Country: JP (occurrence: JP)
  Receive Date: 20200325
  Receipt Date: 20201201
  Transmission Date: 20210113
  Serious: Yes (Death, Hospitalization, Other)
  Sender: FDA-Public Use
  Company Number: JP-ELI_LILLY_AND_COMPANY-JP202003007790

PATIENT
  Age: 62 Year
  Sex: Male
  Weight: 44 kg

DRUGS (5)
  1. NECITUMUMAB [Suspect]
     Active Substance: NECITUMUMAB
     Dosage: 600 MG, CYCLICAL
     Route: 041
     Dates: start: 20200325, end: 20200401
  2. NECITUMUMAB [Suspect]
     Active Substance: NECITUMUMAB
     Indication: SQUAMOUS CELL CARCINOMA OF LUNG
     Dosage: 800 MG, CYCLICAL
     Route: 041
     Dates: start: 20200219, end: 20200226
  3. GEMZAR [Suspect]
     Active Substance: GEMCITABINE HYDROCHLORIDE
     Indication: SQUAMOUS CELL CARCINOMA OF LUNG
     Dosage: 1800 MG, CYCLICAL
     Route: 041
     Dates: start: 20200219, end: 20200412
  4. ZOLEDRONIC ACID [Concomitant]
     Active Substance: ZOLEDRONIC ACID
     Indication: ELECTROLYTE SUBSTITUTION THERAPY
     Dosage: UNK
     Dates: start: 20200313, end: 20200313
  5. CISPLATIN. [Concomitant]
     Active Substance: CISPLATIN
     Indication: SQUAMOUS CELL CARCINOMA OF LUNG
     Dosage: UNK
     Route: 041
     Dates: start: 20200219, end: 20200412

REACTIONS (3)
  - Dermatitis acneiform [Not Recovered/Not Resolved]
  - Neutrophil count decreased [Recovered/Resolved]
  - Malignant neoplasm progression [Fatal]

NARRATIVE: CASE EVENT DATE: 20200303
